FAERS Safety Report 17787636 (Version 1)
Quarter: 2020Q2

REPORT INFORMATION
  Report Type: Spontaneous
  Country: CN (occurrence: CN)
  Receive Date: 20200514
  Receipt Date: 20200514
  Transmission Date: 20200714
  Serious: Yes (Other)
  Sender: FDA-Public Use
  Company Number: CN-ROCHE-2571776

PATIENT
  Sex: Female

DRUGS (2)
  1. HERCEPTIN [Suspect]
     Active Substance: TRASTUZUMAB
     Indication: BREAST CANCER
     Route: 065
     Dates: start: 20191227
  2. PACLITAXEL. [Concomitant]
     Active Substance: PACLITAXEL
     Indication: BREAST CANCER
     Route: 065
     Dates: start: 20191227

REACTIONS (6)
  - Alopecia [Unknown]
  - Tricuspid valve incompetence [Unknown]
  - Laryngeal discomfort [Unknown]
  - Inflammation [Unknown]
  - Hepatic function abnormal [Unknown]
  - Mitral valve incompetence [Unknown]
